FAERS Safety Report 18121803 (Version 2)
Quarter: 2020Q4

REPORT INFORMATION
  Report Type: Report from Study
  Country: None (occurrence: CO)
  Receive Date: 20200807
  Receipt Date: 20201031
  Transmission Date: 20210113
  Serious: Yes (Other)
  Sender: FDA-Public Use
  Company Number: CO-ABBVIE-20K-036-3513907-00

PATIENT
  Sex: Male

DRUGS (3)
  1. HUMIRA [Suspect]
     Active Substance: ADALIMUMAB
     Indication: ANKYLOSING SPONDYLITIS
     Route: 058
     Dates: start: 20150521
  2. HUMIRA [Suspect]
     Active Substance: ADALIMUMAB
     Indication: ANKYLOSING SPONDYLITIS
     Route: 058
  3. ACETAMINOPHEN. [Concomitant]
     Active Substance: ACETAMINOPHEN
     Indication: PRODUCT USED FOR UNKNOWN INDICATION
     Route: 048
     Dates: start: 202007, end: 202007

REACTIONS (7)
  - Pain in extremity [Recovering/Resolving]
  - Product administration error [Unknown]
  - Ankylosing spondylitis [Recovering/Resolving]
  - Drug ineffective [Recovered/Resolved]
  - Uveitis [Recovering/Resolving]
  - Product storage error [Unknown]
  - Enteritis infectious [Recovering/Resolving]

NARRATIVE: CASE EVENT DATE: 202007
